FAERS Safety Report 23735005 (Version 2)
Quarter: 2024Q2

REPORT INFORMATION
  Report Type: Spontaneous
  Country: US (occurrence: US)
  Receive Date: 20240412
  Receipt Date: 20240524
  Transmission Date: 20240716
  Serious: Yes (Death, Other)
  Sender: FDA-Public Use
  Company Number: US-002147023-NVSC2024US076423

PATIENT

DRUGS (1)
  1. CAPMATINIB [Suspect]
     Active Substance: CAPMATINIB
     Indication: Non-small cell lung cancer
     Dosage: 400 MG/KG, QD
     Route: 048

REACTIONS (3)
  - Non-small cell lung cancer [Fatal]
  - General physical health deterioration [Fatal]
  - Oedema peripheral [Not Recovered/Not Resolved]
